FAERS Safety Report 5416975-8 (Version None)
Quarter: 2007Q3

REPORT INFORMATION
  Report Type: 
  Country: None (occurrence: None)
  Receive Date: 20070718
  Receipt Date: 20060712
  Transmission Date: 20080115
  Serious: Yes (Hospitalization, Other)
  Sender: FDA-Public Use
  Company Number: 2006062479

PATIENT
  Age: 31 Year
  Sex: Male
  Weight: 145.151 kg

DRUGS (5)
  1. CELEBREX [Suspect]
     Indication: ARTHRALGIA
     Dosage: 400 MG (400 MG,1 IN 1 D)
     Dates: start: 20040501, end: 20040701
  2. HUMULIN (INSULIN HUMAN, INSULIN ISOPHANE, HUMAN BIOSYNTHETIC) [Concomitant]
  3. LIPITOR [Concomitant]
  4. MAVIK [Concomitant]
  5. HUMALOG [Concomitant]

REACTIONS (3)
  - CHEST PAIN [None]
  - DEPRESSION [None]
  - MYOCARDIAL INFARCTION [None]
